FAERS Safety Report 25726210 (Version 3)
Quarter: 2025Q4

REPORT INFORMATION
  Report Type: Spontaneous
  Country: US (occurrence: US)
  Receive Date: 20250826
  Receipt Date: 20251125
  Transmission Date: 20260117
  Serious: No
  Sender: SANOFI AVENTIS
  Company Number: US-SA-2025SA254677

PATIENT
  Age: 76 Year
  Sex: Female

DRUGS (2)
  1. DUPIXENT [Suspect]
     Active Substance: DUPILUMAB
     Indication: Gastrooesophageal reflux disease
     Dosage: 600 MG, 1X
     Route: 058
     Dates: start: 20250408, end: 20250408
  2. DUPIXENT [Suspect]
     Active Substance: DUPILUMAB
     Dosage: 300 MG, QOW
     Route: 058
     Dates: start: 202504, end: 202508

REACTIONS (2)
  - Gastrooesophageal reflux disease [Unknown]
  - Unintentional use for unapproved indication [Unknown]

NARRATIVE: CASE EVENT DATE: 20250101
